FAERS Safety Report 20855312 (Version 1)
Quarter: 2022Q2

REPORT INFORMATION
  Report Type: Spontaneous
  Country: US (occurrence: US)
  Receive Date: 20220520
  Receipt Date: 20220520
  Transmission Date: 20220721
  Serious: No
  Sender: FDA-Public Use
  Company Number: US-PFIZER INC-202200382095

PATIENT
  Age: 52 Year

DRUGS (13)
  1. GABAPENTIN [Suspect]
     Active Substance: GABAPENTIN
     Indication: Pain management
     Dosage: UNK
     Dates: start: 20220126
  2. GABAPENTIN [Suspect]
     Active Substance: GABAPENTIN
     Indication: Arthritis
  3. GABAPENTIN [Suspect]
     Active Substance: GABAPENTIN
     Indication: Inflammation
  4. GABAPENTIN [Suspect]
     Active Substance: GABAPENTIN
     Indication: Peripheral swelling
  5. TRAMADOL [Suspect]
     Active Substance: TRAMADOL
     Indication: Arthritis
     Dosage: UNK
  6. TRAMADOL [Suspect]
     Active Substance: TRAMADOL
     Indication: Inflammation
  7. TRAMADOL [Suspect]
     Active Substance: TRAMADOL
     Indication: Peripheral swelling
  8. DICLOFENAC [Suspect]
     Active Substance: DICLOFENAC
     Indication: Arthritis
     Dosage: UNK
  9. DICLOFENAC [Suspect]
     Active Substance: DICLOFENAC
     Indication: Inflammation
  10. DICLOFENAC [Suspect]
     Active Substance: DICLOFENAC
     Indication: Peripheral swelling
  11. PREDNISONE [Suspect]
     Active Substance: PREDNISONE
     Indication: Arthritis
     Dosage: UNK
  12. PREDNISONE [Suspect]
     Active Substance: PREDNISONE
     Indication: Inflammation
  13. PREDNISONE [Suspect]
     Active Substance: PREDNISONE
     Indication: Peripheral swelling

REACTIONS (1)
  - Drug ineffective [Unknown]
